FAERS Safety Report 5908963-X (Version None)
Quarter: 2008Q4

REPORT INFORMATION
  Report Type: 
  Country: None (occurrence: None)
  Receive Date: 20081001
  Receipt Date: 20080924
  Transmission Date: 20090506
  Serious: Yes (Other)
  Sender: FDA-Public Use
  Company Number: ADR2192008

PATIENT
  Age: 76 Year
  Sex: Female

DRUGS (1)
  1. ALENDRON-SANDOZ (ALENDRONATE) TABLETS 70 MG [Suspect]
     Dosage: ORAL
     Route: 048
     Dates: start: 20080201, end: 20080701

REACTIONS (2)
  - ASCITES [None]
  - MUSCLE ATROPHY [None]
